FAERS Safety Report 12835014 (Version 2)
Quarter: 2018Q4

REPORT INFORMATION
  Report Type: Spontaneous
  Country: US (occurrence: US)
  Receive Date: 20161010
  Receipt Date: 20181205
  Transmission Date: 20190204
  Serious: Yes (Life-Threatening, Other)
  Sender: FDA-Public Use
  Company Number: US-GILEAD-2016-0237586

PATIENT
  Age: 65 Year
  Sex: Female

DRUGS (1)
  1. HARVONI [Suspect]
     Active Substance: LEDIPASVIR\SOFOSBUVIR
     Indication: HEPATITIS C
     Dosage: 1 DF, QD
     Route: 065

REACTIONS (8)
  - Physical assault [Unknown]
  - Agitation [Unknown]
  - Confusional state [Unknown]
  - Frustration tolerance decreased [Unknown]
  - Impulsive behaviour [Unknown]
  - Paranoia [Unknown]
  - Suicide attempt [Unknown]
  - Anger [Unknown]
